FAERS Safety Report 18684481 (Version 3)
Quarter: 2021Q2

REPORT INFORMATION
  Report Type: Spontaneous
  Country: US (occurrence: US)
  Receive Date: 20201230
  Receipt Date: 20210416
  Transmission Date: 20210717
  Serious: Yes (Hospitalization)
  Sender: FDA-Public Use
  Company Number: US-INDIVIOR US-INDV-127088-2020

PATIENT

DRUGS (2)
  1. SUBLOCADE [Suspect]
     Active Substance: BUPRENORPHINE
     Indication: DRUG DEPENDENCE
     Dosage: 300 MILLIGRAM, QMO (3 INJECTIONS)
     Route: 058
     Dates: start: 2019
  2. SUBLOCADE [Suspect]
     Active Substance: BUPRENORPHINE
     Dosage: 300 MILLIGRAM, QMO (6 INJECTIONS)
     Route: 058
     Dates: start: 2020

REACTIONS (8)
  - Visual impairment [Unknown]
  - Miosis [Unknown]
  - Mental impairment [Unknown]
  - Illness [Unknown]
  - Drug screen positive [Unknown]
  - Vomiting [Not Recovered/Not Resolved]
  - Back pain [Unknown]
  - Hospitalisation [Unknown]

NARRATIVE: CASE EVENT DATE: 202009
